FAERS Safety Report 19022916 (Version 1)
Quarter: 2021Q1

REPORT INFORMATION
  Report Type: Spontaneous
  Country: CN (occurrence: CN)
  Receive Date: 20210318
  Receipt Date: 20210318
  Transmission Date: 20210420
  Serious: Yes (Other)
  Sender: FDA-Public Use
  Company Number: CN-LUPIN PHARMACEUTICALS INC.-2021-03304

PATIENT

DRUGS (4)
  1. GLUCOSE [Concomitant]
     Active Substance: DEXTROSE
     Indication: PRODUCT USED FOR UNKNOWN INDICATION
     Dosage: UNK
     Route: 065
  2. AZITHROMYCIN ANHYDROUS. [Suspect]
     Active Substance: AZITHROMYCIN ANHYDROUS
     Indication: PNEUMONIA
     Dosage: UNK (2ML:0.1G) WAS ADDED TO 5% GLUCOSE INJECTION)
     Route: 042
  3. DOPAMINE [Concomitant]
     Active Substance: DOPAMINE HYDROCHLORIDE
     Indication: CARDIAC FAILURE
     Dosage: 0.5 MILLIGRAM/KILOGRAM (INTRAVENOUS DRIP AT AN INFUSION SPEED OF 3?5MICROGRAM/(KG MIN))
     Route: 041
  4. CREATINE PHOSPHATE SODIUM [Concomitant]
     Active Substance: CREATINE
     Indication: CARDIAC FAILURE
     Dosage: UNK, QD
     Route: 041

REACTIONS (1)
  - Drug ineffective [Unknown]
